FAERS Safety Report 10086081 (Version 1)
Quarter: 2014Q2

REPORT INFORMATION
  Report Type: Spontaneous
  Country: None (occurrence: None)
  Receive Date: 20140415
  Receipt Date: 20140415
  Transmission Date: 20141212
  Serious: Yes (Hospitalization)
  Sender: FDA-Public Use
  Company Number: AUR-APL-2010-00720

PATIENT
  Age: 73 Year
  Sex: Female

DRUGS (11)
  1. ZOLPIDEM [Suspect]
     Indication: PRODUCT USED FOR UNKNOWN INDICATION
  2. AMIODARONE (AMIODARONE) [Suspect]
     Indication: PRODUCT USED FOR UNKNOWN INDICATION
  3. BROMAZEPAM [Suspect]
     Indication: PRODUCT USED FOR UNKNOWN INDICATION
  4. ESOMEPRAZOLE [Suspect]
     Indication: PRODUCT USED FOR UNKNOWN INDICATION
  5. RAMIPRIL (RAMIPRIL) [Concomitant]
  6. ATORVASTATIN [Concomitant]
  7. AMLODIPINE (AMLODIPINE) [Concomitant]
  8. GLICLAZIDE (GLICLAZIDE) [Concomitant]
  9. BETAHISTINE [Concomitant]
  10. FLUINDIONE [Concomitant]
  11. DIPYRAMIDOLE [Concomitant]

REACTIONS (9)
  - Coma [None]
  - Intentional overdose [None]
  - Drug interaction [None]
  - Bradypnoea [None]
  - Sinus bradycardia [None]
  - Electrocardiogram QRS complex shortened [None]
  - International normalised ratio increased [None]
  - Pneumonia aspiration [None]
  - Confusional state [None]
